FAERS Safety Report 5121939-8 (Version None)
Quarter: 2006Q4

REPORT INFORMATION
  Report Type: 
  Country: None (occurrence: None)
  Receive Date: 20061003
  Receipt Date: 20060921
  Transmission Date: 20070319
  Serious: Yes (Hospitalization)
  Sender: FDA-Public Use
  Company Number: E2020-00507-SPO-JP

PATIENT
  Age: 76 Year
  Sex: Female

DRUGS (5)
  1. ARICEPT [Suspect]
     Indication: DEMENTIA ALZHEIMER'S TYPE
     Dosage: SEE IMAGE, ORAL
     Route: 048
     Dates: start: 20060221, end: 20060306
  2. ARICEPT [Suspect]
     Indication: DEMENTIA ALZHEIMER'S TYPE
     Dosage: SEE IMAGE, ORAL
     Route: 048
     Dates: start: 20060307, end: 20060831
  3. LASIX [Concomitant]
  4. ALDACTONE [Concomitant]
  5. DEPAS (ETIZOLAM) [Concomitant]

REACTIONS (2)
  - SICK SINUS SYNDROME [None]
  - SINUS ARREST [None]
